FAERS Safety Report 21141534 (Version 1)
Quarter: 2022Q3

REPORT INFORMATION
  Report Type: Spontaneous
  Country: US (occurrence: None)
  Receive Date: 20220727
  Receipt Date: 20220727
  Transmission Date: 20221027
  Serious: Yes (Other)
  Sender: FDA-Public Use
  Company Number: None

PATIENT
  Age: 49 Year
  Sex: Female
  Weight: 112.5 kg

DRUGS (1)
  1. MAGNESIUM CITRATE [Suspect]
     Active Substance: MAGNESIUM CITRATE
     Dosage: OTHER QUANTITY : 10 OUNCE(S);?
     Route: 048
     Dates: end: 20220623

REACTIONS (3)
  - Vomiting [None]
  - Malaise [None]
  - Procedure aborted [None]

NARRATIVE: CASE EVENT DATE: 20220623
